FAERS Safety Report 7795410-9 (Version None)
Quarter: 2011Q3

REPORT INFORMATION
  Report Type: 
  Country: None (occurrence: None)
  Receive Date: 20110930
  Receipt Date: 20110928
  Transmission Date: 20111222
  Serious: Yes (Hospitalization)
  Sender: FDA-Public Use
  Company Number: SP04633

PATIENT
  Age: 50 Year
  Sex: Male

DRUGS (2)
  1. OSMOPREP [Suspect]
     Indication: BOWEL PREPARATION
     Dosage: (32 TABLETS),ORAL
     Route: 048
     Dates: start: 20110915, end: 20110916
  2. SURGAM [Suspect]
     Dosage: ORAL
     Route: 048
     Dates: start: 20110910, end: 20110914

REACTIONS (1)
  - COLITIS EROSIVE [None]
